FAERS Safety Report 16208094 (Version 1)
Quarter: 2019Q2

REPORT INFORMATION
  Report Type: Report from Study
  Country: DE (occurrence: DE)
  Receive Date: 20190417
  Receipt Date: 20190417
  Transmission Date: 20190711
  Serious: Yes (Death, Life-Threatening)
  Sender: FDA-Public Use
  Company Number: DE-BAYER-2019-074650

PATIENT
  Age: 80 Year
  Sex: Male
  Weight: 85 kg

DRUGS (18)
  1. XTANDI [Concomitant]
     Active Substance: ENZALUTAMIDE
     Indication: PROSTATE CANCER
     Dosage: 4 X 40 MG DAILY
     Dates: start: 20160708
  2. ALLOPURINOL RATIOPHARM [Concomitant]
     Dosage: 300 MG, QD
     Dates: start: 2010
  3. NOVAMINSULFON [Concomitant]
     Active Substance: METAMIZOLE
     Dosage: 25-30 DROPS, PRN
     Dates: start: 20140419
  4. RED BLOOD CELLS, CONCENTRATED [Concomitant]
     Active Substance: HUMAN RED BLOOD CELL
     Indication: ANAEMIA
     Dosage: UNK
     Dates: start: 20160512, end: 20160512
  5. XOFIGO [Suspect]
     Active Substance: RADIUM RA-223 DICHLORIDE
     Indication: METASTASES TO BONE
     Dosage: DAILY DOSE 4.885 MBQ
     Dates: start: 20160425, end: 20160425
  6. XOFIGO [Suspect]
     Active Substance: RADIUM RA-223 DICHLORIDE
     Indication: HORMONE-REFRACTORY PROSTATE CANCER
     Dosage: DAILY DOSE 4.64 MBQ
     Dates: start: 20160520, end: 20160520
  7. XOFIGO [Suspect]
     Active Substance: RADIUM RA-223 DICHLORIDE
     Indication: HORMONE-REFRACTORY PROSTATE CANCER
     Dosage: DAILY DOSE 5.243 MBQ
     Dates: start: 20160617, end: 20160617
  8. XOFIGO [Suspect]
     Active Substance: RADIUM RA-223 DICHLORIDE
     Indication: HORMONE-REFRACTORY PROSTATE CANCER
     Dosage: DAILY DOSE 4.731 MBQ
     Dates: start: 20160715, end: 20160715
  9. XOFIGO [Suspect]
     Active Substance: RADIUM RA-223 DICHLORIDE
     Indication: HORMONE-REFRACTORY PROSTATE CANCER
     Dosage: DAILY DOSE 4.501 MBQ
     Dates: start: 20160812, end: 20160812
  10. RAMILICH [Concomitant]
     Active Substance: RAMIPRIL
     Dosage: 5 MG, QD
     Dates: start: 2010
  11. RED BLOOD CELLS, CONCENTRATED [Concomitant]
     Active Substance: HUMAN RED BLOOD CELL
     Indication: ANAEMIA
     Dosage: UNK
     Dates: start: 20160614, end: 20160614
  12. RED BLOOD CELLS, CONCENTRATED [Concomitant]
     Active Substance: HUMAN RED BLOOD CELL
     Indication: ANAEMIA
     Dosage: UNK
     Dates: start: 20160712, end: 20160712
  13. METOPROLOL TARTRATE. [Concomitant]
     Active Substance: METOPROLOL TARTRATE
     Dosage: 100/12.5 MG, QD
     Dates: start: 2010
  14. XOFIGO [Suspect]
     Active Substance: RADIUM RA-223 DICHLORIDE
     Indication: HORMONE-REFRACTORY PROSTATE CANCER
     Dosage: DAILY DOSE 4.276 MBQ
     Dates: start: 20160324, end: 20160324
  15. RED BLOOD CELLS, CONCENTRATED [Concomitant]
     Active Substance: HUMAN RED BLOOD CELL
     Indication: ANAEMIA
     Dosage: UNK
     Dates: start: 20160503, end: 20160503
  16. XTANDI [Concomitant]
     Active Substance: ENZALUTAMIDE
     Indication: PROSTATE CANCER
     Dosage: 4 X 40 MG DAILY
     Dates: start: 201602, end: 201602
  17. TRENANTONE [Concomitant]
     Active Substance: LEUPROLIDE ACETATE
     Indication: PROSTATE CANCER
     Dosage: 11.25 MG, Q3MON
     Dates: start: 2014
  18. RED BLOOD CELLS, CONCENTRATED [Concomitant]
     Active Substance: HUMAN RED BLOOD CELL
     Indication: ANAEMIA
     Dosage: UNK
     Dates: start: 20160727, end: 20160727

REACTIONS (1)
  - Leukopenia [Unknown]

NARRATIVE: CASE EVENT DATE: 20160826
